FAERS Safety Report 8926428 (Version 2)
Quarter: 2013Q1

REPORT INFORMATION
  Report Type: Spontaneous
  Country: US (occurrence: US)
  Receive Date: 20121126
  Receipt Date: 20130304
  Transmission Date: 20140127
  Serious: No
  Sender: FDA-Public Use
  Company Number: US-009507513-1211USA008090

PATIENT
  Sex: Female
  Weight: 56.69 kg

DRUGS (2)
  1. NUVARING [Suspect]
     Indication: CONTRACEPTION
     Dosage: EVERY 3 WEEKS IN, 1 WEEK OUT
     Route: 067
     Dates: start: 201204
  2. NUVARING [Suspect]
     Indication: BLOOD OESTROGEN

REACTIONS (3)
  - Alopecia [Unknown]
  - Weight increased [Unknown]
  - Nausea [Unknown]
